FAERS Safety Report 6381695-2 (Version None)
Quarter: 2009Q3

REPORT INFORMATION
  Report Type: 
  Country: None (occurrence: None)
  Receive Date: 20090930
  Receipt Date: 20090917
  Transmission Date: 20100115
  Serious: Yes (Other)
  Sender: FDA-Public Use
  Company Number: PHHY2009FR40031

PATIENT
  Age: 63 Year
  Sex: Female

DRUGS (4)
  1. ZOMETA [Suspect]
     Indication: METASTASES TO BONE
     Dosage: 4 MG, QMO
  2. ZOMETA [Suspect]
     Indication: BREAST CANCER
  3. FASLODEX [Concomitant]
     Dosage: UNK
  4. PREVISCAN [Concomitant]

REACTIONS (1)
  - BLOOD CHOLESTEROL INCREASED [None]
